FAERS Safety Report 9822661 (Version 1)
Quarter: 2014Q1

REPORT INFORMATION
  Report Type: Spontaneous
  Country: US (occurrence: US)
  Receive Date: 20140116
  Receipt Date: 20140116
  Transmission Date: 20141002
  Serious: No
  Sender: FDA-Public Use
  Company Number: US-BIOGENIDEC-2014BI004230

PATIENT
  Age: 33 Year
  Sex: Female

DRUGS (2)
  1. TYSABRI [Suspect]
     Indication: MULTIPLE SCLEROSIS
     Route: 042
     Dates: start: 20081010
  2. AVONEX [Concomitant]
     Route: 030
     Dates: start: 20080805

REACTIONS (8)
  - Incoherent [Recovered/Resolved]
  - Cold sweat [Recovered/Resolved]
  - Feeling abnormal [Not Recovered/Not Resolved]
  - Rhinorrhoea [Unknown]
  - Sinusitis [Not Recovered/Not Resolved]
  - Asthenia [Not Recovered/Not Resolved]
  - Multiple sclerosis [Not Recovered/Not Resolved]
  - Influenza [Not Recovered/Not Resolved]
